FAERS Safety Report 15494659 (Version 1)
Quarter: 2018Q4

REPORT INFORMATION
  Report Type: Spontaneous
  Country: US (occurrence: US)
  Receive Date: 20181012
  Receipt Date: 20181012
  Transmission Date: 20190205
  Serious: Yes (Other)
  Sender: FDA-Public Use
  Company Number: PHHY2018US123011

PATIENT

DRUGS (4)
  1. CETUXIMAB. [Concomitant]
     Active Substance: CETUXIMAB
     Indication: SQUAMOUS CELL CARCINOMA OF HEAD AND NECK
     Dosage: 400 MG/M2, QW
     Route: 042
  2. PAZOPANIB [Suspect]
     Active Substance: PAZOPANIB
     Indication: SQUAMOUS CELL CARCINOMA OF HEAD AND NECK
     Dosage: 200 MG, QD
     Route: 065
  3. PAZOPANIB [Suspect]
     Active Substance: PAZOPANIB
     Dosage: 400 MG, QD
     Route: 065
  4. CETUXIMAB. [Concomitant]
     Active Substance: CETUXIMAB
     Dosage: 250 MG/M2, QW
     Route: 042

REACTIONS (2)
  - Anaemia [Unknown]
  - Product use in unapproved indication [Unknown]
